FAERS Safety Report 4274165-9 (Version None)
Quarter: 2004Q1

REPORT INFORMATION
  Report Type: 
  Country: None (occurrence: None)
  Receive Date: 20040115
  Receipt Date: 20040107
  Transmission Date: 20041129
  Serious: Yes (Hospitalization, Other)
  Sender: FDA-Public Use
  Company Number: 2004001282

PATIENT
  Age: 72 Year
  Sex: Female
  Weight: 70.3075 kg

DRUGS (3)
  1. NORVASC [Suspect]
     Indication: HYPERTENSION
     Dosage: 10 MG (DAILY), ORAL
     Route: 048
     Dates: end: 20040107
  2. VINCRISTINE [Concomitant]
  3. DOXORUBICIN HCL [Concomitant]

REACTIONS (3)
  - BRADYCARDIA [None]
  - CARCINOMA [None]
  - HYPOKALAEMIA [None]
